FAERS Safety Report 9177936 (Version 2)
Quarter: 2013Q2

REPORT INFORMATION
  Report Type: Spontaneous
  Country: US (occurrence: None)
  Receive Date: 20120531
  Receipt Date: 20121130
  Transmission Date: 20140414
  Serious: Yes (Other)
  Sender: FDA-Public Use
  Company Number: US201203002687

PATIENT
  Age: 31 Year
  Sex: Female

DRUGS (15)
  1. BYDUREON [Suspect]
     Indication: TYPE 2 DIABETES MELLITUS
     Route: 058
     Dates: start: 20120227, end: 20120308
  2. ALPRAZOLAM [Concomitant]
  3. PROAIR HFA [Suspect]
  4. FLUOXETINE (FLUOXETINE) CAPSULE ONGOING [Concomitant]
  5. FLUTICASONE FUROATE (FLUTICASONE FUROATE) SUSPENSION ONGOING [Concomitant]
  6. HYDROCODONE W/APAP (HYDROCODONE, PARACETAMOL) CAPSULE ONGOING [Concomitant]
  7. HYDROCORTISONE (HYDROCORTISONE) OINTMENT ONGOING [Concomitant]
  8. HYOSCYAMINE (HYOSCYAMINE) ONGOING [Concomitant]
  9. LANTUS (INSULIN GLARGINE) PEN, DISPOSABLE ONGOING [Concomitant]
  10. INSULIN LISPRO (INSULIN LISPRO) ONGOING [Concomitant]
  11. LEVOCETIRIZE DIHYDROCHLORIDE (LEVOCETIRIZINE DIHDROCHLORIDE) ONGOING [Concomitant]
  12. MEDROXYPROGESTERONE ACETATE (MEDROXYPROGESTERONE ACETATE) SUSPENSION ONGOING [Concomitant]
  13. RITALIN (METHYLPHENIDATE HYDROCHLORIDE) ONGOING [Concomitant]
  14. RANITIDINE (RANITIDINE) ONGOING [Concomitant]
  15. AMBIEN (ZOLPIDEM TARTRATE) ONGOING [Concomitant]

REACTIONS (5)
  - Off label use [None]
  - Pruritus [None]
  - Abdominal pain [None]
  - Rash generalised [None]
  - Urticaria [None]
